FAERS Safety Report 10537560 (Version 1)
Quarter: 2014Q4

REPORT INFORMATION
  Report Type: Spontaneous
  Country: US (occurrence: None)
  Receive Date: 20141021
  Receipt Date: 20141021
  Transmission Date: 20150529
  Serious: Yes (Hospitalization)
  Sender: FDA-Public Use
  Company Number: 2579886

PATIENT
  Age: 63 Year
  Sex: Male
  Weight: 103.1 kg

DRUGS (7)
  1. POTASSIUM CHLORIDE. [Concomitant]
     Active Substance: POTASSIUM CHLORIDE
  2. ASPIRIN. [Concomitant]
     Active Substance: ASPIRIN
  3. FUROSEMIDE. [Concomitant]
     Active Substance: FUROSEMIDE
  4. PRAVASTATIN [Suspect]
     Active Substance: PRAVASTATIN\PRAVASTATIN SODIUM
  5. ENOXAPARIN [Suspect]
     Active Substance: ENOXAPARIN
     Indication: DEEP VEIN THROMBOSIS
     Route: 058
  6. HEPARIN SODIUM. [Suspect]
     Active Substance: HEPARIN SODIUM
     Indication: PRODUCT USED FOR UNKNOWN INDICATION
  7. OLMESARTAN [Concomitant]
     Active Substance: OLMESARTAN

REACTIONS (19)
  - Respiratory failure [None]
  - Heparin-induced thrombocytopenia [None]
  - Axillary vein thrombosis [None]
  - Optic ischaemic neuropathy [None]
  - Cough [None]
  - Superior vena cava syndrome [None]
  - Pulmonary embolism [None]
  - Jugular vein thrombosis [None]
  - Musculoskeletal stiffness [None]
  - Subclavian vein thrombosis [None]
  - Epistaxis [None]
  - Hypotension [None]
  - International normalised ratio increased [None]
  - Chronic kidney disease [None]
  - Deafness [None]
  - Deep vein thrombosis [None]
  - Acute kidney injury [None]
  - Haemodialysis [None]
  - Loss of consciousness [None]
